FAERS Safety Report 6325408-9 (Version None)
Quarter: 2009Q3

REPORT INFORMATION
  Report Type: 
  Country: None (occurrence: None)
  Receive Date: 20090824
  Receipt Date: 20090710
  Transmission Date: 20100115
  Serious: No
  Sender: FDA-Public Use
  Company Number: US-ABBOTT-09P-163-0585266-00

PATIENT
  Sex: Male
  Weight: 136.2 kg

DRUGS (5)
  1. NIASPAN [Suspect]
     Indication: BLOOD TRIGLYCERIDES INCREASED
     Dosage: 1500MG DAILY AT BEDTIME
     Route: 048
  2. UNKNOWN DIABETIC MEDICATION [Concomitant]
     Indication: DRUG USE FOR UNKNOWN INDICATION
  3. ASPIRIN [Concomitant]
     Indication: DRUG USE FOR UNKNOWN INDICATION
     Route: 048
  4. XANAX [Concomitant]
     Indication: DRUG USE FOR UNKNOWN INDICATION
     Route: 048
  5. EITHER TRICOR OR TRILIPEX [Concomitant]
     Indication: DRUG USE FOR UNKNOWN INDICATION

REACTIONS (1)
  - FLUSHING [None]
